FAERS Safety Report 13238465 (Version 1)
Quarter: 2017Q1

REPORT INFORMATION
  Report Type: Report from Study
  Country: BR (occurrence: BR)
  Receive Date: 20170216
  Receipt Date: 20170216
  Transmission Date: 20170428
  Serious: Yes (Hospitalization)
  Sender: FDA-Public Use
  Company Number: BR-BIOGEN-2017BI00357950

PATIENT
  Age: 41 Year
  Sex: Female

DRUGS (2)
  1. TECFIDERA [Suspect]
     Active Substance: DIMETHYL FUMARATE
     Dosage: MAINTENANCE DOSE
     Route: 048
  2. TECFIDERA [Suspect]
     Active Substance: DIMETHYL FUMARATE
     Indication: MULTIPLE SCLEROSIS
     Dosage: STARTING DOSE
     Route: 048

REACTIONS (11)
  - Trigeminal nerve disorder [Unknown]
  - Gallbladder necrosis [Unknown]
  - Cholelithiasis [Unknown]
  - Visual acuity reduced [Unknown]
  - Abdominal pain upper [Unknown]
  - Vomiting [Unknown]
  - Road traffic accident [Recovered/Resolved]
  - Gastrointestinal disorder [Unknown]
  - Dyspepsia [Unknown]
  - Cholecystitis infective [Unknown]
  - Pain [Unknown]

NARRATIVE: CASE EVENT DATE: 20170208
